APPROVED DRUG PRODUCT: LEVETIRACETAM
Active Ingredient: LEVETIRACETAM
Strength: 500MG
Dosage Form/Route: TABLET, EXTENDED RELEASE;ORAL
Application: A204754 | Product #001 | TE Code: AB
Applicant: AIPING PHARMACEUTICAL INC
Approved: Aug 26, 2016 | RLD: No | RS: No | Type: RX